FAERS Safety Report 10436340 (Version 1)
Quarter: 2014Q3

REPORT INFORMATION
  Report Type: Spontaneous
  Country: US (occurrence: None)
  Receive Date: 20140904
  Receipt Date: 20140904
  Transmission Date: 20150326
  Serious: Yes (Other)
  Sender: FDA-Public Use
  Company Number: US-H14001-14-00471

PATIENT

DRUGS (9)
  1. BUPIVACAINE W/ FENTANYL [Concomitant]
  2. MORPHINE (MORPHINE SULFATE) (UNKNOWN) (MORPHINE SULFATE) [Suspect]
     Active Substance: MORPHINE SULFATE
     Indication: ANXIETY
     Dosage: UNKNOWN (AS REQUIRED), TRANSPLACENTAL
     Route: 064
  3. BUSPIRONE [Suspect]
     Active Substance: BUSPIRONE HYDROCHLORIDE
     Indication: ANXIETY
     Dosage: (UNKNOWN) , TRANSPLACENTAL
     Route: 064
  4. MAGNESIUM [Concomitant]
     Active Substance: MAGNESIUM
  5. MORPHINE (MORPHINE SULFATE) (UNKNOWN) (MORPHINE SULFATE) [Suspect]
     Active Substance: MORPHINE SULFATE
     Indication: PAIN
     Dosage: UNKNOWN (AS REQUIRED), TRANSPLACENTAL
     Route: 064
  6. LORAZEPAM  (LORAZEPAM) (UNKNOWN) (LORAZEPAM) [Suspect]
     Active Substance: LORAZEPAM
     Indication: PAIN
     Dosage: UNKNOWN , (AS REQUIRED), TRANSPLACENTAL
     Route: 064
  7. BUSPIRONE [Suspect]
     Active Substance: BUSPIRONE HYDROCHLORIDE
     Indication: PAIN
     Dosage: (UNKNOWN) , TRANSPLACENTAL
     Route: 064
  8. STEROIDS (CORTICOSTEROIDS) (UNKNOWN) [Concomitant]
     Active Substance: UNSPECIFIED INGREDIENT
  9. OXYTOCIN. [Concomitant]
     Active Substance: OXYTOCIN

REACTIONS (4)
  - Pre-eclampsia [None]
  - Maternal drugs affecting foetus [None]
  - Caesarean section [None]
  - Foetal heart rate deceleration abnormality [None]
